FAERS Safety Report 7128444-8 (Version None)
Quarter: 2010Q4

REPORT INFORMATION
  Report Type: 
  Country: None (occurrence: None)
  Receive Date: 20101130
  Receipt Date: 20101115
  Transmission Date: 20110411
  Serious: Yes (Other)
  Sender: FDA-Public Use
  Company Number: US-SANOFI-AVENTIS-2010SA070078

PATIENT
  Age: 72 Year
  Sex: Female

DRUGS (8)
  1. MULTAQ [Suspect]
     Indication: ATRIAL FIBRILLATION
     Route: 048
     Dates: start: 20100610
  2. DILTIAZEM [Suspect]
     Route: 048
     Dates: start: 20100615, end: 20100616
  3. DILTIAZEM [Suspect]
     Route: 048
  4. VASOTEC [Concomitant]
  5. HYDROCHLOROTHIAZIDE [Concomitant]
  6. NEXIUM [Concomitant]
  7. EFFEXOR [Concomitant]
  8. SOTALOL [Concomitant]
     Dates: end: 20100610

REACTIONS (6)
  - ATRIAL FIBRILLATION [None]
  - DIZZINESS [None]
  - FATIGUE [None]
  - GAIT DISTURBANCE [None]
  - HEART RATE INCREASED [None]
  - SOMNOLENCE [None]
